FAERS Safety Report 5540409-6 (Version None)
Quarter: 2007Q4

REPORT INFORMATION
  Report Type: 
  Country: None (occurrence: None)
  Receive Date: 20071208
  Receipt Date: 20070710
  Transmission Date: 20080405
  Serious: No
  Sender: FDA-Public Use
  Company Number: US-AMGEN-KDL231334

PATIENT
  Sex: Male
  Weight: 69.9 kg

DRUGS (3)
  1. ENBREL [Suspect]
     Indication: ANKYLOSING SPONDYLITIS
     Route: 058
     Dates: start: 20070401
  2. PREDNISONE [Concomitant]
     Dates: start: 20070416
  3. CELEBREX [Concomitant]
     Dates: start: 20070416

REACTIONS (2)
  - INJECTION SITE REACTION [None]
  - INJECTION SITE SWELLING [None]
